FAERS Safety Report 6938223-X (Version None)
Quarter: 2010Q3

REPORT INFORMATION
  Report Type: 
  Country: None (occurrence: None)
  Receive Date: 20100824
  Receipt Date: 20100824
  Transmission Date: 20110219
  Serious: Yes (Hospitalization)
  Sender: FDA-Public Use
  Company Number: US-ELI_LILLY_AND_COMPANY-US201007001394

PATIENT
  Sex: Female
  Weight: 64.5 kg

DRUGS (3)
  1. DULOXETINE HYDROCHLORIDE [Suspect]
     Indication: DEPRESSION
     Dosage: 60 MG, UNK
     Route: 048
     Dates: start: 20100322
  2. OTHER PHARMA COMPANY INV DRUG [Suspect]
     Indication: DEPRESSION
     Route: 048
     Dates: start: 20100322
  3. DULCOLAX [Concomitant]
     Indication: CONSTIPATION
     Dosage: 10 MG, UNK
     Dates: start: 20100408

REACTIONS (3)
  - HIP FRACTURE [None]
  - ROAD TRAFFIC ACCIDENT [None]
  - UPPER LIMB FRACTURE [None]
